FAERS Safety Report 5941816-X (Version None)
Quarter: 2008Q4

REPORT INFORMATION
  Report Type: 
  Country: None (occurrence: None)
  Receive Date: 20081105
  Receipt Date: 20081031
  Transmission Date: 20090506
  Serious: Yes (Other)
  Sender: FDA-Public Use
  Company Number: PHEH2008US04950

PATIENT
  Sex: Female

DRUGS (3)
  1. FEMARA [Suspect]
     Dosage: UNK
     Dates: start: 20070901
  2. ALDARA [Suspect]
     Indication: SUNBURN
     Dosage: UNK
     Route: 061
     Dates: start: 20080101
  3. ALDARA [Suspect]
     Indication: PRECANCEROUS SKIN LESION

REACTIONS (5)
  - ACTINIC KERATOSIS [None]
  - CHEILITIS [None]
  - LIP PAIN [None]
  - PRECANCEROUS SKIN LESION [None]
  - SUNBURN [None]
